FAERS Safety Report 7647395-3 (Version None)
Quarter: 2011Q3

REPORT INFORMATION
  Report Type: 
  Country: None (occurrence: None)
  Receive Date: 20110801
  Receipt Date: 20110718
  Transmission Date: 20111222
  Serious: Yes (Other)
  Sender: FDA-Public Use
  Company Number: FR-UCBSA-036377

PATIENT
  Sex: Male
  Weight: 89 kg

DRUGS (2)
  1. VIMPAT [Suspect]
     Indication: EPILEPSY
     Dosage: TWO DOSAGE FORMS ONCE A DAY
     Route: 048
     Dates: start: 20110526, end: 20110610
  2. CLONAZEPAM [Concomitant]

REACTIONS (6)
  - HEART RATE INCREASED [None]
  - DIZZINESS [None]
  - SUICIDAL IDEATION [None]
  - IMPAIRED DRIVING ABILITY [None]
  - CEREBRAL DISORDER [None]
  - PANIC REACTION [None]
